FAERS Safety Report 8814214 (Version 1)
Quarter: 2012Q4

REPORT INFORMATION
  Report Type: Spontaneous
  Country: US (occurrence: None)
  Receive Date: 20120926
  Receipt Date: 20120926
  Transmission Date: 20130627
  Serious: Yes (Disabling)
  Sender: FDA-Public Use
  Company Number: None

PATIENT
  Age: 39 Year
  Sex: Male
  Weight: 92.99 kg

DRUGS (1)
  1. CIPRO [Suspect]
     Indication: PILONIDAL CYST
     Dosage: 750mg 2 po
     Route: 048
     Dates: start: 20090110, end: 20090120

REACTIONS (2)
  - Tendon rupture [None]
  - Tendon pain [None]
